FAERS Safety Report 15319456 (Version 3)
Quarter: 2018Q3

REPORT INFORMATION
  Report Type: Spontaneous
  Country: US (occurrence: US)
  Receive Date: 20180827
  Receipt Date: 20180920
  Transmission Date: 20181010
  Serious: Yes (Hospitalization)
  Sender: FDA-Public Use
  Company Number: US-UCBSA-2018036195

PATIENT
  Sex: Female
  Weight: 45 kg

DRUGS (1)
  1. CIMZIA [Suspect]
     Active Substance: CERTOLIZUMAB PEGOL
     Indication: CROHN^S DISEASE
     Dosage: 400 MG, MONTHLY (QM)
     Route: 058

REACTIONS (1)
  - Pneumonia cryptococcal [Recovered/Resolved]
